FAERS Safety Report 6489322-0 (Version None)
Quarter: 2009Q4

REPORT INFORMATION
  Report Type: 
  Country: None (occurrence: None)
  Receive Date: 20091210
  Receipt Date: 20091006
  Transmission Date: 20100525
  Serious: No
  Sender: FDA-Public Use
  Company Number: US-AMGEN-KDL367937

PATIENT
  Sex: Female
  Weight: 47.7 kg

DRUGS (6)
  1. ENBREL [Suspect]
     Indication: PSORIATIC ARTHROPATHY
  2. HUMIRA [Suspect]
     Indication: PSORIATIC ARTHROPATHY
     Route: 058
     Dates: start: 20090903
  3. LIDOCAINE [Concomitant]
  4. UNSPECIFIED MEDICATION [Concomitant]
  5. FOLIC ACID [Concomitant]
  6. METHOTREXATE [Concomitant]

REACTIONS (5)
  - DRUG INEFFECTIVE [None]
  - JOINT SWELLING [None]
  - JOINT WARMTH [None]
  - OCULAR ICTERUS [None]
  - YELLOW SKIN [None]
